FAERS Safety Report 19162624 (Version 5)
Quarter: 2021Q2

REPORT INFORMATION
  Report Type: Report from Study
  Country: US (occurrence: US)
  Receive Date: 20210421
  Receipt Date: 20210527
  Transmission Date: 20210717
  Serious: Yes (Hospitalization)
  Sender: FDA-Public Use
  Company Number: NVSC2021US083534

PATIENT
  Sex: Female

DRUGS (13)
  1. HYDROCODONE [Concomitant]
     Active Substance: HYDROCODONE
     Indication: PRODUCT USED FOR UNKNOWN INDICATION
     Dosage: 5MG/325MG
     Route: 065
  2. MAGNESIUM OXIDE. [Concomitant]
     Active Substance: MAGNESIUM OXIDE
     Indication: PRODUCT USED FOR UNKNOWN INDICATION
     Dosage: 200 MG, UNK
     Route: 065
  3. FEMARA [Suspect]
     Active Substance: LETROZOLE
     Indication: ENDOMETRIAL CANCER
     Dosage: 2.5 MG, QD
     Route: 048
     Dates: start: 20210311, end: 20210403
  4. MULTI?VIT [Concomitant]
     Active Substance: VITAMINS
     Indication: PRODUCT USED FOR UNKNOWN INDICATION
     Dosage: UNK
     Route: 065
  5. KISQALI [Suspect]
     Active Substance: RIBOCICLIB
     Dosage: 200 MG, QD
     Route: 048
     Dates: start: 20210429
  6. ZORTRESS [Suspect]
     Active Substance: EVEROLIMUS
     Indication: ENDOMETRIAL CANCER
     Dosage: 2.5 MG, QD
     Route: 048
     Dates: start: 20210311, end: 20210403
  7. ZYRTEC [Concomitant]
     Active Substance: CETIRIZINE HYDROCHLORIDE
     Indication: PRODUCT USED FOR UNKNOWN INDICATION
     Dosage: 10 MG, UNK
     Route: 065
  8. OMEPRAZOLE. [Concomitant]
     Active Substance: OMEPRAZOLE
     Indication: PRODUCT USED FOR UNKNOWN INDICATION
     Dosage: 40 MG, UNK
     Route: 065
  9. ZORTRESS [Suspect]
     Active Substance: EVEROLIMUS
     Dosage: 2.5 MG, QD
     Route: 048
     Dates: start: 20210429
  10. COMPAZINE [Concomitant]
     Active Substance: PROCHLORPERAZINE MALEATE
     Indication: PRODUCT USED FOR UNKNOWN INDICATION
     Dosage: 10 MG, UNK
     Route: 065
  11. FEMARA [Suspect]
     Active Substance: LETROZOLE
     Dosage: 2.5 MG, QD
     Route: 048
     Dates: start: 20210429
  12. KISQALI [Suspect]
     Active Substance: RIBOCICLIB
     Indication: ENDOMETRIAL CANCER
     Dosage: 200 MG, QD
     Route: 048
     Dates: start: 20210311, end: 20210403
  13. ZOLOFT [Concomitant]
     Active Substance: SERTRALINE HYDROCHLORIDE
     Indication: PRODUCT USED FOR UNKNOWN INDICATION
     Dosage: 50 MG, UNK
     Route: 065

REACTIONS (1)
  - Anaemia [Recovered/Resolved]

NARRATIVE: CASE EVENT DATE: 20210401
